FAERS Safety Report 10701486 (Version 1)
Quarter: 2014Q4

REPORT INFORMATION
  Report Type: Spontaneous
  Country: US (occurrence: None)
  Receive Date: 20141223
  Receipt Date: 20141223
  Transmission Date: 20150529
  Serious: No
  Sender: FDA-Public Use
  Company Number: 1000070590

PATIENT
  Age: 77 Year
  Sex: Male

DRUGS (4)
  1. ABRAXANE (PACLITAXEL) (PACLITAXEL) [Concomitant]
  2. LINZESS [Suspect]
     Active Substance: LINACLOTIDE
     Indication: CONSTIPATION
     Dosage: 145MCG (145 MCG, 1 IN 1 D), ORAL
     Route: 048
     Dates: start: 201408, end: 201408
  3. CARAFATE (SUCRALFATE) (SUCRALFATE) [Concomitant]
  4. PROTONIX (PANTOPRAZOLE SODIUM SESQUIHYDRATE) (PANTOPRAZOLE SODIUM SESQUIHYDRATE) [Concomitant]

REACTIONS (1)
  - Off label use [None]

NARRATIVE: CASE EVENT DATE: 201408
